FAERS Safety Report 11385554 (Version 1)
Quarter: 2015Q3

REPORT INFORMATION
  Report Type: Report from Study
  Country: US (occurrence: US)
  Receive Date: 20150816
  Receipt Date: 20150816
  Transmission Date: 20151125
  Serious: No
  Sender: FDA-Public Use
  Company Number: PHHY2014US070611

PATIENT
  Age: 57 Year
  Sex: Male

DRUGS (2)
  1. CYMBALTA [Concomitant]
     Active Substance: DULOXETINE HYDROCHLORIDE
     Indication: DEPRESSION
     Dosage: 30 MG, QD
     Route: 065
     Dates: start: 20140414, end: 20140417
  2. GILENYA [Suspect]
     Active Substance: FINGOLIMOD HYDROCHLORIDE
     Indication: MULTIPLE SCLEROSIS
     Dosage: UNK UNK, QD
     Route: 065

REACTIONS (10)
  - Diarrhoea [Unknown]
  - Lymphocyte count decreased [Unknown]
  - Hot flush [Recovered/Resolved]
  - Lacrimation increased [Unknown]
  - Chills [Recovered/Resolved]
  - Night sweats [Recovered/Resolved]
  - Fatigue [Unknown]
  - Peripheral swelling [Unknown]
  - Pain in extremity [Unknown]
  - Muscle spasms [Unknown]

NARRATIVE: CASE EVENT DATE: 20140414
